FAERS Safety Report 16213552 (Version 1)
Quarter: 2019Q2

REPORT INFORMATION
  Report Type: Spontaneous
  Country: GR (occurrence: GR)
  Receive Date: 20190418
  Receipt Date: 20190418
  Transmission Date: 20190711
  Serious: Yes (Death, Hospitalization)
  Sender: FDA-Public Use
  Company Number: GR-CELGENEUS-GRC-20190310464

PATIENT
  Age: 66 Year
  Sex: Male
  Weight: 81 kg

DRUGS (6)
  1. ELOTUZUMAB. [Concomitant]
     Active Substance: ELOTUZUMAB
     Indication: PLASMA CELL MYELOMA
     Route: 041
     Dates: start: 20170516, end: 20190107
  2. SALOSPIR [Concomitant]
     Active Substance: ASPIRIN
     Indication: PRODUCT USED FOR UNKNOWN INDICATION
     Dosage: DOSE NOT PROVIDED
     Route: 065
     Dates: start: 2000
  3. CRESTOR [Concomitant]
     Active Substance: ROSUVASTATIN CALCIUM
     Indication: PRODUCT USED FOR UNKNOWN INDICATION
     Dosage: DOSE NOT PROVIDED
     Route: 065
     Dates: start: 2000
  4. POMALIDOMIDE [Suspect]
     Active Substance: POMALIDOMIDE
     Indication: PLASMA CELL MYELOMA
     Route: 048
     Dates: start: 20170516, end: 20190107
  5. DEXAMETHASONE ORAL [Suspect]
     Active Substance: DEXAMETHASONE
     Indication: PLASMA CELL MYELOMA
     Route: 048
     Dates: start: 20170516, end: 20190107
  6. COPALIA [Concomitant]
     Active Substance: AMLODIPINE BESYLATE\VALSARTAN
     Indication: PRODUCT USED FOR UNKNOWN INDICATION
     Dosage: DOSE NOT PROVIDED
     Route: 065
     Dates: start: 2000

REACTIONS (1)
  - H1N1 influenza [Fatal]

NARRATIVE: CASE EVENT DATE: 20190220
